FAERS Safety Report 7956668-6 (Version None)
Quarter: 2011Q4

REPORT INFORMATION
  Report Type: 
  Country: None (occurrence: None)
  Receive Date: 20111130
  Receipt Date: 20111115
  Transmission Date: 20120403
  Serious: Yes (Life-Threatening, Hospitalization)
  Sender: FDA-Public Use
  Company Number: 2011AP002706

PATIENT
  Age: 27 Year
  Sex: Male

DRUGS (8)
  1. DOSULEPIN (DOSULEPIN) [Concomitant]
  2. VALPROATE SODIUM [Concomitant]
  3. TOPIRAMATE [Suspect]
     Indication: MIGRAINE PROPHYLAXIS
     Dosage: 50 MG;BID
     Route: 048
     Dates: start: 20100212
  4. ESCITALOPRAM [Concomitant]
  5. ZOLMITRIPTAN [Concomitant]
  6. REPAGLINIDE [Concomitant]
  7. ZOPICLONE (ZOPICLONE) [Concomitant]
  8. TRAMADOL HCL [Concomitant]

REACTIONS (2)
  - INTENTIONAL SELF-INJURY [None]
  - TRAUMATIC LIVER INJURY [None]
